FAERS Safety Report 8265628-X (Version None)
Quarter: 2012Q2

REPORT INFORMATION
  Report Type: 
  Country: None (occurrence: None)
  Receive Date: 20120406
  Receipt Date: 20120222
  Transmission Date: 20120825
  Serious: Yes (Other)
  Sender: FDA-Public Use
  Company Number: CHPA2012US006255

PATIENT
  Age: 93 Year
  Sex: Female

DRUGS (4)
  1. EXCEDRIN TENSION HEADACHE CAPLETS [Suspect]
     Indication: HEADACHE
     Dosage: 2 DF, QD
     Route: 048
     Dates: start: 20100222
  2. LABETALOL HCL [Concomitant]
  3. MUSCLE RELAXANTS [Concomitant]
     Indication: ARTHRALGIA
     Dosage: RUB WHEN NEEDED
     Route: 061
  4. LISINOPRIL [Concomitant]

REACTIONS (5)
  - OFF LABEL USE [None]
  - INCORRECT DRUG ADMINISTRATION DURATION [None]
  - DRUG INEFFECTIVE [None]
  - ANAEMIA [None]
  - SPINAL COLUMN STENOSIS [None]
